FAERS Safety Report 10283765 (Version 1)
Quarter: 2014Q3

REPORT INFORMATION
  Report Type: Spontaneous
  Country: US (occurrence: None)
  Receive Date: 20140703
  Receipt Date: 20140703
  Transmission Date: 20150326
  Serious: Yes (Other)
  Sender: FDA-Public Use
  Company Number: None

PATIENT
  Age: 59 Year
  Sex: Male
  Weight: 99.79 kg

DRUGS (3)
  1. ACYCLOVIR. [Concomitant]
     Active Substance: ACYCLOVIR
  2. AZACITIDINE. [Suspect]
     Active Substance: AZACITIDINE
     Indication: MYELODYSPLASTIC SYNDROME
     Dosage: 170 MG DAILY FOR 5 DAYS SUBCUTANEOUS
     Route: 058
     Dates: start: 20131028, end: 20140624
  3. MULTIVITAMIN [Concomitant]
     Active Substance: VITAMINS

REACTIONS (12)
  - Stem cell transplant [None]
  - Blast cell count increased [None]
  - Febrile neutropenia [None]
  - Influenza [None]
  - Nephropathy toxic [None]
  - Generalised oedema [None]
  - Unevaluable event [None]
  - Oedema peripheral [None]
  - Renal failure acute [None]
  - Fungal infection [None]
  - Visceral oedema [None]
  - Proteinuria [None]

NARRATIVE: CASE EVENT DATE: 20131110
